FAERS Safety Report 22255814 (Version 1)
Quarter: 2023Q2

REPORT INFORMATION
  Report Type: Spontaneous
  Country: US (occurrence: US)
  Receive Date: 20230426
  Receipt Date: 20230426
  Transmission Date: 20230721
  Serious: Yes (Other)
  Sender: FDA-Public Use
  Company Number: US-UPSHER-SMITH LABORATORIES, LLC-2023USL00392

PATIENT
  Age: 20 Year
  Sex: Female

DRUGS (1)
  1. MYORISAN [Suspect]
     Active Substance: ISOTRETINOIN
     Dosage: UNK
     Dates: start: 20230303, end: 202303

REACTIONS (4)
  - Insomnia [Unknown]
  - Dry skin [Unknown]
  - Nasal dryness [Unknown]
  - Lip dry [Unknown]

NARRATIVE: CASE EVENT DATE: 20230301
